FAERS Safety Report 23147006 (Version 2)
Quarter: 2023Q4

REPORT INFORMATION
  Report Type: Spontaneous
  Country: US (occurrence: US)
  Receive Date: 20231106
  Receipt Date: 20231115
  Transmission Date: 20240109
  Serious: Yes (Other)
  Sender: FDA-Public Use
  Company Number: US-BEIGENE-BGN-2023-012494

PATIENT

DRUGS (2)
  1. BRUKINSA [Suspect]
     Active Substance: ZANUBRUTINIB
     Indication: Chronic lymphocytic leukaemia
  2. PROTONIX [Concomitant]
     Active Substance: PANTOPRAZOLE SODIUM
     Dosage: UNK

REACTIONS (8)
  - Cerebrovascular accident [Unknown]
  - Tardive dyskinesia [Unknown]
  - Drooling [Unknown]
  - Dysarthria [Unknown]
  - Rash [Unknown]
  - White blood cell count decreased [Unknown]
  - Platelet count increased [Unknown]
  - Catheter placement [Unknown]
